FAERS Safety Report 6217247-4 (Version None)
Quarter: 2009Q2

REPORT INFORMATION
  Report Type: 
  Country: None (occurrence: None)
  Receive Date: 20090608
  Receipt Date: 20090526
  Transmission Date: 20091009
  Serious: Yes (Other)
  Sender: FDA-Public Use
  Company Number: GB-PFIZER INC-2009217803

PATIENT
  Age: 45 Year

DRUGS (5)
  1. PHENYTOIN AND PHENYTOIN SODIUM [Suspect]
     Indication: EPILEPSY
     Dosage: 350 MG, 1X/DAY
     Route: 048
     Dates: start: 20060404
  2. PHENYTOIN AND PHENYTOIN SODIUM [Suspect]
     Dosage: 300 MG, 1X/DAY
     Route: 048
     Dates: start: 20090202
  3. PHENYTOIN AND PHENYTOIN SODIUM [Suspect]
     Dosage: 275 MG, 1X/DAY
     Route: 048
     Dates: start: 20090201, end: 20090201
  4. VALPROIC ACID [Suspect]
     Dosage: UNK
  5. LACOSAMIDE [Suspect]
     Indication: EPILEPSY
     Dosage: 200 MG, 2X/DAY
     Dates: start: 20080915

REACTIONS (3)
  - ANTICONVULSANT DRUG LEVEL ABNORMAL [None]
  - DIPLOPIA [None]
  - VISION BLURRED [None]
